FAERS Safety Report 14354466 (Version 2)
Quarter: 2018Q1

REPORT INFORMATION
  Report Type: Spontaneous
  Country: US (occurrence: US)
  Receive Date: 20180105
  Receipt Date: 20180201
  Transmission Date: 20180509
  Serious: Yes (Other)
  Sender: FDA-Public Use
  Company Number: US-TEVA-2017-US-842227

PATIENT
  Sex: Male

DRUGS (2)
  1. RIFAXIMIN. [Concomitant]
     Active Substance: RIFAXIMIN
     Dosage: 1650 MILLIGRAM DAILY;
     Route: 065
  2. NEOMYCIN. [Suspect]
     Active Substance: NEOMYCIN
     Indication: GASTROINTESTINAL BACTERIAL OVERGROWTH
     Dosage: 1000 MILLIGRAM DAILY;
     Route: 065
     Dates: start: 20171203, end: 20171217

REACTIONS (3)
  - Deafness [Unknown]
  - Tinnitus [Unknown]
  - Balance disorder [Unknown]

NARRATIVE: CASE EVENT DATE: 20171214
